FAERS Safety Report 7380893-9 (Version None)
Quarter: 2011Q1

REPORT INFORMATION
  Report Type: 
  Country: None (occurrence: None)
  Receive Date: 20110329
  Receipt Date: 20110315
  Transmission Date: 20110831
  Serious: Yes (Hospitalization)
  Sender: FDA-Public Use
  Company Number: PHHY2011US21240

PATIENT
  Sex: Female

DRUGS (14)
  1. ZANTAC [Concomitant]
     Dosage: 75 MG, UNK
  2. HYDROCHLOROTHIAZIDE [Concomitant]
     Dosage: UNK
  3. MURO 128 [Concomitant]
  4. EXELON [Suspect]
     Dosage: 4.6 MG, QD
     Route: 062
  5. QUESTRAN [Concomitant]
     Dosage: 1 DF, QD
  6. EFFEXOR [Concomitant]
     Dosage: 75 MG, QD
  7. ACULAR [Concomitant]
  8. MEDROL [Concomitant]
     Dosage: 2 MG, QD
  9. DILTIA XT [Concomitant]
     Dosage: 240 MG, UNK
  10. RESTASIS [Concomitant]
     Dosage: 1 DF, BID
  11. CALCIUM [Concomitant]
  12. VITAMIN D [Concomitant]
     Dosage: 2 DF, DAIY
  13. CELEXA [Concomitant]
     Dosage: 40 MG, UNK
  14. GABAPENTIN [Concomitant]
     Dosage: 300 MG, BID

REACTIONS (4)
  - VOMITING [None]
  - DEHYDRATION [None]
  - DYSGEUSIA [None]
  - MALAISE [None]
